FAERS Safety Report 10075468 (Version 2)
Quarter: 2014Q2

REPORT INFORMATION
  Report Type: Spontaneous
  Country: US (occurrence: US)
  Receive Date: 20140414
  Receipt Date: 20140624
  Transmission Date: 20141212
  Serious: No
  Sender: FDA-Public Use
  Company Number: US-B.I. PHARMACEUTICALS,INC./RIDGEFIELD-2014-BI-14837BP

PATIENT
  Age: 65 Year
  Sex: Male
  Weight: 61.23 kg

DRUGS (3)
  1. SPIRIVA [Suspect]
     Indication: DYSPNOEA
     Dosage: 18 MCG
     Route: 055
     Dates: start: 2012
  2. SPIRIVA [Suspect]
     Indication: ASTHMA
  3. SYMBICORT [Concomitant]
     Indication: ASTHMA
     Dosage: 4 PUF
     Route: 065

REACTIONS (6)
  - Loss of consciousness [Recovered/Resolved]
  - Decreased appetite [Unknown]
  - Asthenia [Unknown]
  - Syncope [Recovered/Resolved]
  - Vision blurred [Unknown]
  - Off label use [Unknown]
